FAERS Safety Report 8193992-9 (Version None)
Quarter: 2012Q1

REPORT INFORMATION
  Report Type: 
  Country: None (occurrence: None)
  Receive Date: 20120308
  Receipt Date: 20120302
  Transmission Date: 20120608
  Serious: No
  Sender: FDA-Public Use
  Company Number: US-BAYER-2012-022443

PATIENT
  Sex: Female

DRUGS (1)
  1. GADAVIST [Suspect]
     Indication: NUCLEAR MAGNETIC RESONANCE IMAGING
     Dosage: 5 ML, ONCE

REACTIONS (5)
  - PHARYNGEAL DISORDER [None]
  - URTICARIA [None]
  - OCULAR HYPERAEMIA [None]
  - NASAL CONGESTION [None]
  - THROAT IRRITATION [None]
